FAERS Safety Report 4583104-2 (Version None)
Quarter: 2005Q1

REPORT INFORMATION
  Report Type: 
  Country: None (occurrence: None)
  Receive Date: 20050125
  Receipt Date: 20041209
  Transmission Date: 20050727
  Serious: No
  Sender: FDA-Public Use
  Company Number: USA041079836

PATIENT
  Age: 61 Year
  Sex: Female
  Weight: 47 kg

DRUGS (3)
  1. FORTEO [Suspect]
     Indication: OSTEOPOROSIS
     Dosage: 20 UG/1 DAY
     Dates: start: 20040924
  2. CALCIUM GLUCONATE [Concomitant]
  3. MULTI-VITAMIN [Concomitant]

REACTIONS (4)
  - INJECTION SITE ERYTHEMA [None]
  - INJECTION SITE IRRITATION [None]
  - NAUSEA [None]
  - RASH PAPULAR [None]
